FAERS Safety Report 5068616-X (Version None)
Quarter: 2006Q3

REPORT INFORMATION
  Report Type: 
  Country: None (occurrence: None)
  Receive Date: 20060802
  Receipt Date: 20060106
  Transmission Date: 20061208
  Serious: No
  Sender: FDA-Public Use
  Company Number: US-BRISTOL-MYERS SQUIBB COMPANY-13239363

PATIENT
  Age: 75 Year
  Sex: Male
  Weight: 70 kg

DRUGS (8)
  1. COUMADIN [Suspect]
     Indication: ATRIAL FIBRILLATION
     Dates: start: 20040701
  2. TOPROL-XL [Concomitant]
  3. NORVASC [Concomitant]
  4. PROTONIX [Concomitant]
  5. IRON (FERROUS SULFATE) [Concomitant]
  6. NEURONTIN [Concomitant]
  7. COSOPT [Concomitant]
  8. ASPIRIN [Concomitant]

REACTIONS (2)
  - CYSTITIS [None]
  - INTERNATIONAL NORMALISED RATIO FLUCTUATION [None]
